FAERS Safety Report 16926695 (Version 4)
Quarter: 2020Q1

REPORT INFORMATION
  Report Type: Spontaneous
  Country: JP (occurrence: JP)
  Receive Date: 20191016
  Receipt Date: 20200316
  Transmission Date: 20200409
  Serious: Yes (Death, Hospitalization)
  Sender: FDA-Public Use
  Company Number: JP-DSJP-DSJ-2019-138929AA

PATIENT

DRUGS (1)
  1. LIXIANA TABLETS [Suspect]
     Active Substance: EDOXABAN TOSYLATE
     Indication: ATRIAL FIBRILLATION
     Dosage: 60 MG, QD
     Route: 048
     Dates: start: 20190404, end: 201904

REACTIONS (5)
  - Embolic stroke [Fatal]
  - Sepsis [Fatal]
  - Pneumonia aspiration [Fatal]
  - Petechiae [Fatal]
  - Meningioma [Fatal]

NARRATIVE: CASE EVENT DATE: 2019
